FAERS Safety Report 23188623 (Version 1)
Quarter: 2023Q4

REPORT INFORMATION
  Report Type: Spontaneous
  Country: US (occurrence: US)
  Receive Date: 20231115
  Receipt Date: 20231115
  Transmission Date: 20240110
  Serious: No
  Sender: FDA-Public Use
  Company Number: US-PFIZER INC-202300358235

PATIENT
  Age: 53 Year
  Sex: Female

DRUGS (1)
  1. HYDROMORPHONE HYDROCHLORIDE [Suspect]
     Active Substance: HYDROMORPHONE HYDROCHLORIDE
     Indication: Pain
     Dosage: UNK

REACTIONS (4)
  - Drug ineffective [Unknown]
  - Chest discomfort [Unknown]
  - Abdominal discomfort [Unknown]
  - Dysphagia [Unknown]
